FAERS Safety Report 24680434 (Version 1)
Quarter: 2024Q4

REPORT INFORMATION
  Report Type: Spontaneous
  Country: FR (occurrence: FR)
  Receive Date: 20241129
  Receipt Date: 20241129
  Transmission Date: 20250115
  Serious: Yes (Other)
  Sender: MERCK
  Company Number: None

PATIENT
  Age: 20 Year
  Sex: Male
  Weight: 75 kg

DRUGS (2)
  1. IVERMECTIN [Suspect]
     Active Substance: IVERMECTIN
     Indication: Acarodermatitis
     Dosage: 5CP ON 09 THEN 5CP ON 15/10
     Route: 048
     Dates: start: 20241009, end: 20241015
  2. BENZYL BENZOATE\SULFIRAM [Suspect]
     Active Substance: BENZYL BENZOATE\SULFIRAM
     Indication: Acarodermatitis
     Dosage: 2 WHITEWASHES ON 10 AND 16/10
     Route: 003
     Dates: start: 20241010, end: 20241015

REACTIONS (5)
  - Chest discomfort [Not Recovered/Not Resolved]
  - Headache [Not Recovered/Not Resolved]
  - Asthenia [Not Recovered/Not Resolved]
  - Hyperhidrosis [Not Recovered/Not Resolved]
  - Pallor [Not Recovered/Not Resolved]

NARRATIVE: CASE EVENT DATE: 20241021
